FAERS Safety Report 21522008 (Version 3)
Quarter: 2022Q4

REPORT INFORMATION
  Report Type: Spontaneous
  Country: US (occurrence: US)
  Receive Date: 20221028
  Receipt Date: 20221213
  Transmission Date: 20230113
  Serious: Yes (Other)
  Sender: FDA-Public Use
  Company Number: US-HISAMITSU PHARMACEUTICAL CO., INC.-2022-NOV-US000993

PATIENT
  Sex: Female

DRUGS (1)
  1. SECUADO [Suspect]
     Active Substance: ASENAPINE
     Indication: Psychotic disorder
     Dosage: 3.8 MG, UNKNOWN
     Route: 062
     Dates: start: 202209, end: 20221021

REACTIONS (11)
  - Balance disorder [Not Recovered/Not Resolved]
  - Neck pain [Not Recovered/Not Resolved]
  - Fatigue [Not Recovered/Not Resolved]
  - Decreased activity [Not Recovered/Not Resolved]
  - Burning sensation [Not Recovered/Not Resolved]
  - Impaired driving ability [Not Recovered/Not Resolved]
  - Facial paresis [Not Recovered/Not Resolved]
  - Sensory loss [Not Recovered/Not Resolved]
  - Somnolence [Not Recovered/Not Resolved]
  - Restlessness [Not Recovered/Not Resolved]
  - Muscular weakness [Not Recovered/Not Resolved]

NARRATIVE: CASE EVENT DATE: 20220101
